FAERS Safety Report 25790359 (Version 1)
Quarter: 2025Q3

REPORT INFORMATION
  Report Type: Spontaneous
  Country: JP (occurrence: JP)
  Receive Date: 20250911
  Receipt Date: 20250911
  Transmission Date: 20251020
  Serious: Yes (Life-Threatening, Other)
  Sender: RANBAXY
  Company Number: JP-SUN PHARMACEUTICAL INDUSTRIES LTD-2024R1-456622

PATIENT
  Age: 65 Year
  Sex: Male
  Weight: 60 kg

DRUGS (13)
  1. TEGRETOL [Suspect]
     Active Substance: CARBAMAZEPINE
     Indication: Neuralgia
     Route: 048
     Dates: start: 20240305, end: 20240325
  2. TEGRETOL [Suspect]
     Active Substance: CARBAMAZEPINE
     Route: 048
     Dates: start: 20240326, end: 20240415
  3. TEGRETOL [Suspect]
     Active Substance: CARBAMAZEPINE
     Route: 048
     Dates: start: 20240416, end: 20240505
  4. FEBUXOSTAT Tablet 20mg [DSEP] [Concomitant]
     Indication: Product used for unknown indication
     Route: 065
  5. SIMVASTATIN Tablet 5mg [YD] [Concomitant]
     Indication: Product used for unknown indication
     Route: 065
  6. DEPAS Tablet 0.25mg [Concomitant]
     Indication: Product used for unknown indication
     Route: 065
  7. BROTIZOLAM OD Tablet 0.25mg [TEVA] [Concomitant]
     Indication: Product used for unknown indication
     Route: 065
  8. MYONAL Tablet 50mg [Concomitant]
     Indication: Product used for unknown indication
     Route: 065
  9. AMENALIEF Tablet 200mg [Concomitant]
     Indication: Product used for unknown indication
     Route: 065
  10. FLORID Gel for oral use 2% [Concomitant]
     Indication: Product used for unknown indication
     Route: 048
  11. CALONAL Tablet 500mg [Concomitant]
     Indication: Product used for unknown indication
     Route: 065
  12. TRANSAMIN Tablet 250mg [Concomitant]
     Indication: Product used for unknown indication
     Route: 065
  13. FEXOFENADINE HYDROCHLORIDE Tablet 60mg [YD] [Concomitant]
     Indication: Product used for unknown indication
     Route: 065

REACTIONS (1)
  - Drug eruption [Recovered/Resolved]

NARRATIVE: CASE EVENT DATE: 20240429
